FAERS Safety Report 4894189-8 (Version None)
Quarter: 2006Q1

REPORT INFORMATION
  Report Type: 
  Country: None (occurrence: None)
  Receive Date: 20060127
  Receipt Date: 20050923
  Transmission Date: 20060701
  Serious: No
  Sender: FDA-Public Use
  Company Number: US-GLAXOSMITHKLINE-A0575689A

PATIENT
  Age: 41 Year
  Sex: Female
  Weight: 69.1 kg

DRUGS (3)
  1. WELLBUTRIN [Suspect]
     Indication: DRUG USE FOR UNKNOWN INDICATION
     Dosage: 150MG TWICE PER DAY
     Route: 048
  2. ZYRTEC [Concomitant]
     Dosage: 10MG PER DAY
  3. ATARAX [Concomitant]
     Dosage: 25MG SINGLE DOSE

REACTIONS (1)
  - PRURITUS GENERALISED [None]
